FAERS Safety Report 25698914 (Version 1)
Quarter: 2025Q3

REPORT INFORMATION
  Report Type: Spontaneous
  Country: GB (occurrence: GB)
  Receive Date: 20250819
  Receipt Date: 20250819
  Transmission Date: 20251021
  Serious: Yes (Hospitalization)
  Sender: CHEPLAPHARM
  Company Number: None

PATIENT
  Age: 68 Year
  Sex: Male

DRUGS (13)
  1. HYDROXYUREA [Suspect]
     Active Substance: HYDROXYUREA
  2. MORPHINE [Concomitant]
     Active Substance: MORPHINE
  3. MORPHINE [Concomitant]
     Active Substance: MORPHINE
  4. SENNA [Concomitant]
     Active Substance: SENNOSIDES
  5. FERROUS FUMARATE [Concomitant]
     Active Substance: FERROUS FUMARATE
  6. FOLIC ACID [Concomitant]
     Active Substance: FOLIC ACID
  7. ATORVASTATIN [Concomitant]
     Active Substance: ATORVASTATIN
  8. DEXAMETHASONE [Concomitant]
     Active Substance: DEXAMETHASONE
  9. ZOPICLONE [Concomitant]
     Active Substance: ZOPICLONE
  10. DOCUSATE [Concomitant]
     Active Substance: DOCUSATE
  11. LANSOPRAZOLE [Concomitant]
     Active Substance: LANSOPRAZOLE
  12. EDOXABAN [Concomitant]
     Active Substance: EDOXABAN
  13. AMLODIPINE [Concomitant]
     Active Substance: AMLODIPINE BESYLATE

REACTIONS (1)
  - Petechiae [Unknown]
